FAERS Safety Report 4915260-8 (Version None)
Quarter: 2006Q1

REPORT INFORMATION
  Report Type: 
  Country: None (occurrence: None)
  Receive Date: 20060216
  Receipt Date: 20060216
  Transmission Date: 20060701
  Serious: Yes (Hospitalization)
  Sender: FDA-Public Use
  Company Number: None

PATIENT
  Sex: Female
  Weight: 63.5036 kg

DRUGS (5)
  1. TOPROL-XL [Suspect]
     Dosage: 12.5 MG PO   PRIOR TO ADMISSION
     Route: 048
  2. ASPIRIN [Concomitant]
  3. TOPROL [Concomitant]
  4. ZOCOR [Concomitant]
  5. ARICEPT [Concomitant]

REACTIONS (4)
  - ASTHENIA [None]
  - BRADYCARDIA [None]
  - DIZZINESS [None]
  - NAUSEA [None]
